FAERS Safety Report 25069206 (Version 4)
Quarter: 2025Q4

REPORT INFORMATION
  Report Type: Spontaneous
  Country: US (occurrence: US)
  Receive Date: 20250312
  Receipt Date: 20251202
  Transmission Date: 20260118
  Serious: No
  Sender: PFIZER
  Company Number: US-PFIZER INC-202500050459

PATIENT
  Age: 13 Year
  Sex: Male
  Weight: 39.01 kg

DRUGS (3)
  1. GENOTROPIN [Suspect]
     Active Substance: SOMATROPIN
     Indication: Short stature
     Dosage: 1.6 MG, DAILY
     Dates: start: 20250304
  2. GENOTROPIN [Suspect]
     Active Substance: SOMATROPIN
     Dosage: 1.8 MG ADMINISTERED ONCE A DAY IN THE ABDOMEN
  3. METHYLPHENIDATE [Concomitant]
     Active Substance: METHYLPHENIDATE
     Indication: Attention deficit hyperactivity disorder
     Dosage: 30MG CAPSULE ONCE A DAY BY MOUTH
     Route: 048

REACTIONS (3)
  - Drug dose omission by device [Unknown]
  - Product knowledge deficit [Unknown]
  - Device leakage [Unknown]
